FAERS Safety Report 5046934-9 (Version None)
Quarter: 2006Q2

REPORT INFORMATION
  Report Type: 
  Country: None (occurrence: None)
  Receive Date: 20060630
  Receipt Date: 20060619
  Transmission Date: 20061013
  Serious: Yes (Other)
  Sender: FDA-Public Use
  Company Number: 2006079746

PATIENT
  Age: 63 Year
  Sex: Male

DRUGS (5)
  1. ESTRACYT (ESTRAMUSTINE PHOSPHATE SODIUM) [Suspect]
     Indication: PROSTATIC SPECIFIC ANTIGEN INCREASED
     Dosage: 560 MG, ORAL
     Route: 048
     Dates: start: 20051208, end: 20060516
  2. ALUMINUM HYDROXIDE/MAGNESIUM CARBONATE (ALUMINIUM HYDROXIDE, MAGNESIUM [Concomitant]
  3. FAMOTIDINE [Concomitant]
  4. DEXAMETHASONE [Concomitant]
  5. DOCETAXEL (DOCETAXEL) [Concomitant]

REACTIONS (1)
  - VISUAL ACUITY REDUCED [None]
